FAERS Safety Report 5524449-9 (Version None)
Quarter: 2007Q4

REPORT INFORMATION
  Report Type: 
  Country: None (occurrence: None)
  Receive Date: 20071122
  Receipt Date: 20071112
  Transmission Date: 20080405
  Serious: Yes (Hospitalization, Other)
  Sender: FDA-Public Use
  Company Number: PHHY2007BR00487

PATIENT
  Sex: Female
  Weight: 77 kg

DRUGS (2)
  1. FORASEQ [Suspect]
     Indication: ASTHMA
     Dosage: 2 INHALATIONS/DAZ
     Dates: start: 20060501
  2. ELANE [Concomitant]
     Indication: CONTRACEPTION
     Dosage: 1 TABLET/DAY
     Route: 048
     Dates: start: 20070801

REACTIONS (4)
  - DISCOMFORT [None]
  - NECK MASS [None]
  - UTERINE REPAIR [None]
  - WEIGHT INCREASED [None]
